FAERS Safety Report 8283431-1 (Version None)
Quarter: 2012Q2

REPORT INFORMATION
  Report Type: 
  Country: None (occurrence: None)
  Receive Date: 20120413
  Receipt Date: 20120403
  Transmission Date: 20120825
  Serious: Yes (Hospitalization)
  Sender: FDA-Public Use
  Company Number: US-ELI_LILLY_AND_COMPANY-US201202006785

PATIENT
  Sex: Male
  Weight: 106.4 kg

DRUGS (2)
  1. HUMULIN R [Suspect]
     Indication: DIABETES MELLITUS
     Dosage: UNK, PRN
  2. LANTUS [Concomitant]

REACTIONS (3)
  - DRUG INEFFECTIVE [None]
  - ANAPHYLACTIC REACTION [None]
  - HYPERGLYCAEMIA [None]
